FAERS Safety Report 22197094 (Version 2)
Quarter: 2023Q2

REPORT INFORMATION
  Report Type: Spontaneous
  Country: JP (occurrence: JP)
  Receive Date: 20230411
  Receipt Date: 20230601
  Transmission Date: 20230722
  Serious: Yes (Hospitalization, Other)
  Sender: FDA-Public Use
  Company Number: JP-OTSUKA-2023_005598

PATIENT
  Age: 42 Year
  Sex: Male

DRUGS (4)
  1. REXULTI [Suspect]
     Active Substance: BREXPIPRAZOLE
     Indication: Hallucination
     Dosage: 2MG/DAY, UNK
     Route: 048
     Dates: start: 20180528, end: 20210827
  2. REXULTI [Suspect]
     Active Substance: BREXPIPRAZOLE
     Indication: Delusion
     Dosage: 1MG/DAY, UNK
     Route: 048
     Dates: start: 20180511, end: 20180527
  3. VALPROATE SODIUM [Concomitant]
     Active Substance: VALPROATE SODIUM
     Indication: Product used for unknown indication
     Dosage: 600MG/DAY, UNK
     Route: 048
     Dates: start: 20150224, end: 202109
  4. VALPROATE SODIUM [Concomitant]
     Active Substance: VALPROATE SODIUM
     Dosage: 800MG/DAY, UNK
     Route: 048
     Dates: start: 202109

REACTIONS (2)
  - Status epilepticus [Recovering/Resolving]
  - Cerebral infarction [Unknown]

NARRATIVE: CASE EVENT DATE: 20210819
